FAERS Safety Report 25704156 (Version 2)
Quarter: 2025Q3

REPORT INFORMATION
  Report Type: Spontaneous
  Country: US (occurrence: US)
  Receive Date: 20250820
  Receipt Date: 20250902
  Transmission Date: 20251021
  Serious: No
  Sender: UNITED THERAPEUTICS
  Company Number: US-UNITED THERAPEUTICS-UNT-2025-027719

PATIENT
  Age: 22 Year
  Sex: Female
  Weight: 50.794 kg

DRUGS (8)
  1. REMODULIN [Suspect]
     Active Substance: TREPROSTINIL
     Indication: Pulmonary arterial hypertension
     Route: 041
  2. REMODULIN [Suspect]
     Active Substance: TREPROSTINIL
     Route: 041
  3. REMODULIN [Suspect]
     Active Substance: TREPROSTINIL
     Route: 041
  4. MACITENTAN\TADALAFIL [Concomitant]
     Active Substance: MACITENTAN\TADALAFIL
     Indication: Product used for unknown indication
  5. SODIUM CHLORIDE [Concomitant]
     Active Substance: SODIUM CHLORIDE
     Indication: Product used for unknown indication
  6. OXYGEN [Concomitant]
     Active Substance: OXYGEN
     Indication: Product used for unknown indication
  7. ASPIRIN [Concomitant]
     Active Substance: ASPIRIN
     Indication: Product used for unknown indication
  8. STERILE WATER [Concomitant]
     Active Substance: WATER
     Indication: Product used for unknown indication

REACTIONS (13)
  - Pain in jaw [Unknown]
  - Arthralgia [Unknown]
  - Dyspnoea exertional [Not Recovered/Not Resolved]
  - Nausea [Unknown]
  - Headache [Unknown]
  - Chest discomfort [Unknown]
  - Dizziness [Unknown]
  - Influenza like illness [Unknown]
  - Myalgia [Unknown]
  - Sensitive skin [Unknown]
  - Injection site pruritus [Unknown]
  - Loss of personal independence in daily activities [Unknown]
  - Product administration interrupted [Not Recovered/Not Resolved]

NARRATIVE: CASE EVENT DATE: 20250801
